FAERS Safety Report 5629348-X (Version None)
Quarter: 2008Q1

REPORT INFORMATION
  Report Type: 
  Country: None (occurrence: None)
  Receive Date: 20080218
  Receipt Date: 20071115
  Transmission Date: 20080703
  Serious: No
  Sender: FDA-Public Use
  Company Number: US-BAYER-US-2007-041793

PATIENT
  Age: 33 Year
  Sex: Female
  Weight: 146 kg

DRUGS (2)
  1. MIRENA [Suspect]
     Indication: CONTRACEPTION
     Route: 015
     Dates: start: 20060215
  2. WELLBUTRIN [Concomitant]

REACTIONS (3)
  - COMPLICATION OF DEVICE REMOVAL [None]
  - FOETAL HEART RATE INCREASED [None]
  - PREGNANCY WITH CONTRACEPTIVE DEVICE [None]
